FAERS Safety Report 5712493-8 (Version None)
Quarter: 2008Q2

REPORT INFORMATION
  Report Type: 
  Country: None (occurrence: None)
  Receive Date: 20080422
  Receipt Date: 20080408
  Transmission Date: 20081010
  Serious: Yes (Other)
  Sender: FDA-Public Use
  Company Number: AU-AMGEN-KDL263784

PATIENT
  Sex: Male

DRUGS (7)
  1. ARANESP [Suspect]
     Indication: RENAL FAILURE CHRONIC
     Route: 058
     Dates: start: 20050207
  2. GLEEVEC [Suspect]
     Dates: start: 20010101, end: 20061201
  3. LEVOTHYROXINE SODIUM [Concomitant]
  4. NITRO-DUR [Concomitant]
  5. TRITACE [Concomitant]
  6. FERROGRAD C [Concomitant]
  7. NEO-CYTAMEN [Concomitant]

REACTIONS (3)
  - ANAEMIA [None]
  - ANTI-ERYTHROPOIETIN ANTIBODY POSITIVE [None]
  - BONE MARROW FAILURE [None]
